FAERS Safety Report 17207522 (Version 10)
Quarter: 2021Q2

REPORT INFORMATION
  Report Type: Report from Study
  Country: CA (occurrence: CA)
  Receive Date: 20191227
  Receipt Date: 20210421
  Transmission Date: 20210716
  Serious: Yes (Hospitalization, Other)
  Sender: FDA-Public Use
  Company Number: CA-JNJFOC-20191234981

PATIENT
  Age: 59 Year
  Sex: Female
  Weight: 45 kg

DRUGS (2)
  1. STELARA [Suspect]
     Active Substance: USTEKINUMAB
     Indication: CROHN^S DISEASE
     Dosage: RECEIVED 29TH DOSE ON 28?JAN?2020?ON 06?JAN?2021, THE PATIENT RECEIVED 41TH USTEKINUMAB INJECTION FO
     Route: 058
     Dates: start: 20170607
  2. STELARA [Suspect]
     Active Substance: USTEKINUMAB
     Route: 058

REACTIONS (13)
  - Frequent bowel movements [Not Recovered/Not Resolved]
  - Diarrhoea [Not Recovered/Not Resolved]
  - Post procedural swelling [Unknown]
  - Asthenia [Unknown]
  - Post procedural infection [Recovering/Resolving]
  - Abdominal pain [Recovering/Resolving]
  - Off label use [Unknown]
  - Abdominal abscess [Recovered/Resolved]
  - Abdominal distension [Unknown]
  - Tooth abscess [Recovered/Resolved]
  - Abdominal operation [Not Recovered/Not Resolved]
  - Abscess [Recovered/Resolved]
  - Product use issue [Unknown]

NARRATIVE: CASE EVENT DATE: 20170802
